FAERS Safety Report 5797303-5 (Version None)
Quarter: 2008Q3

REPORT INFORMATION
  Report Type: 
  Country: None (occurrence: None)
  Receive Date: 20080701
  Receipt Date: 20080619
  Transmission Date: 20090109
  Serious: Yes (Other)
  Sender: FDA-Public Use
  Company Number: US-PFIZER INC-2008053072

PATIENT
  Sex: Female
  Weight: 88.5 kg

DRUGS (16)
  1. LYRICA [Suspect]
     Indication: NEUROPATHY PERIPHERAL
  2. NEURONTIN [Suspect]
     Indication: NEUROPATHY PERIPHERAL
  3. ADVAIR DISKUS 100/50 [Suspect]
  4. METHYLPHENIDATE HCL [Concomitant]
  5. SYNTHROID [Concomitant]
  6. LEXAPRO [Concomitant]
  7. BUPROPION HCL [Concomitant]
  8. TIZANIDINE HCL [Concomitant]
  9. OMEPRAZOLE [Concomitant]
  10. MONTELUKAST SODIUM [Concomitant]
  11. SPIRIVA [Concomitant]
  12. ALL OTHER THERAPEUTIC PRODUCTS [Concomitant]
  13. ALBUTEROL [Concomitant]
  14. PROMETHAZINE [Concomitant]
  15. OXYCODONE HCL [Concomitant]
     Indication: BREAKTHROUGH PAIN
  16. METHADON HCL TAB [Concomitant]

REACTIONS (4)
  - BLISTER [None]
  - SKIN DISORDER [None]
  - SKIN LESION [None]
  - SOMNOLENCE [None]
